FAERS Safety Report 23515035 (Version 5)
Quarter: 2024Q1

REPORT INFORMATION
  Report Type: Report from Study
  Country: US (occurrence: US)
  Receive Date: 20240212
  Receipt Date: 20240325
  Transmission Date: 20240409
  Serious: Yes (Other)
  Sender: FDA-Public Use
  Company Number: US-TAKEDA-2024TUS005409

PATIENT
  Age: 55 Year
  Sex: Male

DRUGS (5)
  1. PONATINIB [Suspect]
     Active Substance: PONATINIB
     Indication: Chronic myeloid leukaemia
     Dosage: 45 MILLIGRAM, QD
     Route: 048
     Dates: start: 20240122
  2. PONATINIB [Suspect]
     Active Substance: PONATINIB
     Dosage: 45 MILLIGRAM, QD
     Route: 048
  3. PONATINIB [Suspect]
     Active Substance: PONATINIB
     Dosage: 45 MILLIGRAM, QD
     Route: 048
  4. PONATINIB [Suspect]
     Active Substance: PONATINIB
     Dosage: 15 MILLIGRAM, QD
     Route: 048
  5. CARVEDILOL [Suspect]
     Active Substance: CARVEDILOL
     Indication: Product used for unknown indication
     Dosage: 6.25 MILLIGRAM
     Route: 065

REACTIONS (20)
  - Narcolepsy [Unknown]
  - Myalgia [Recovered/Resolved]
  - Feeling abnormal [Recovering/Resolving]
  - Gait inability [Recovering/Resolving]
  - Eructation [Recovering/Resolving]
  - Thirst [Recovering/Resolving]
  - Headache [Unknown]
  - Muscular weakness [Unknown]
  - Blood pressure increased [Not Recovered/Not Resolved]
  - Rash [Unknown]
  - Arthralgia [Unknown]
  - Dyspnoea [Unknown]
  - Fatigue [Unknown]
  - Blood creatine increased [Not Recovered/Not Resolved]
  - Dry skin [Unknown]
  - Hypokinesia [Unknown]
  - Nervousness [Unknown]
  - Insomnia [Unknown]
  - Pain of skin [Unknown]
  - Off label use [Unknown]

NARRATIVE: CASE EVENT DATE: 20240124
